FAERS Safety Report 19156489 (Version 2)
Quarter: 2021Q2

REPORT INFORMATION
  Report Type: Spontaneous
  Country: ES (occurrence: ES)
  Receive Date: 20210420
  Receipt Date: 20210505
  Transmission Date: 20210717
  Serious: Yes (Hospitalization, Other)
  Sender: FDA-Public Use
  Company Number: ES-AUROBINDO-AUR-APL-2021-014202

PATIENT
  Age: 74 Year
  Sex: Female
  Weight: 69 kg

DRUGS (10)
  1. OXALIPLATIN CONCENTRATE FOR SOLUTION FOR INFUSION [Suspect]
     Active Substance: OXALIPLATIN
     Dosage: 143.65 MILLIGRAM, CYCLICAL (ONCE EVERY TWO WEEKS)
     Route: 042
     Dates: start: 20210302, end: 20210302
  2. FLUOROURACIL. [Suspect]
     Active Substance: FLUOROURACIL
     Indication: GASTRIC CANCER
     Dosage: 4056 MILLIGRAM, CYCLICAL (ONCE EVERY TWO WEEKS)
     Route: 042
     Dates: start: 20210215
  3. CALCIUM FOLINATE [Concomitant]
     Active Substance: LEUCOVORIN CALCIUM
     Indication: GASTRIC CANCER
     Dosage: 676 MILLIGRAM, CYCLICAL (ONCE EVERY TWO WEEKS)
     Route: 042
     Dates: start: 20210215
  4. DOCETAXEL. [Concomitant]
     Active Substance: DOCETAXEL
     Dosage: 84.5 MILLIGRAM, CYCLICAL (ONCE EVERY TWO WEEKS)
     Route: 042
     Dates: start: 20210302, end: 20210302
  5. AVELUMAB [Concomitant]
     Active Substance: AVELUMAB
     Indication: GASTRIC CANCER
     Dosage: 670 MILLIGRAM, CYCLICAL (ONCE EVERY TWO WEEKS)
     Route: 042
     Dates: start: 20210215
  6. CALCIUM FOLINATE [Concomitant]
     Active Substance: LEUCOVORIN CALCIUM
     Dosage: 676 MILLIGRAM, CYCLICAL (ONCE EVERY TWO WEEKS)
     Route: 042
     Dates: start: 20210302, end: 20210302
  7. DOCETAXEL. [Concomitant]
     Active Substance: DOCETAXEL
     Indication: GASTRIC CANCER
     Dosage: 84.5 MILLIGRAM, CYCLICAL (ONCE EVERY TWO WEEKS)
     Route: 042
     Dates: start: 20210215
  8. OXALIPLATIN CONCENTRATE FOR SOLUTION FOR INFUSION [Suspect]
     Active Substance: OXALIPLATIN
     Indication: GASTRIC CANCER
     Dosage: 143.65 MILLIGRAM, CYCLICAL (ONCE EVERY TWO WEEKS)
     Route: 042
     Dates: start: 20210215
  9. AVELUMAB [Concomitant]
     Active Substance: AVELUMAB
     Dosage: 670 MILLIGRAM, CYCLICAL (ONCE EVERY TWO WEEKS)
     Route: 042
     Dates: start: 20210302, end: 20210302
  10. FLUOROURACIL. [Suspect]
     Active Substance: FLUOROURACIL
     Dosage: 4056 MILLIGRAM, CYCLICAL (ONCE EVERY TWO WEEKS)
     Route: 042
     Dates: start: 20210302, end: 20210302

REACTIONS (2)
  - Intestinal obstruction [Recovering/Resolving]
  - Enteritis [Recovered/Resolved]

NARRATIVE: CASE EVENT DATE: 20210315
